FAERS Safety Report 23417094 (Version 1)
Quarter: 2024Q1

REPORT INFORMATION
  Report Type: Spontaneous
  Country: EG (occurrence: EG)
  Receive Date: 20240118
  Receipt Date: 20240118
  Transmission Date: 20240410
  Serious: Yes (Hospitalization)
  Sender: FDA-Public Use
  Company Number: EG-BRISTOL-MYERS SQUIBB COMPANY-2024-008874

PATIENT
  Sex: Male

DRUGS (1)
  1. REBLOZYL [Suspect]
     Active Substance: LUSPATERCEPT-AAMT
     Indication: Myelodysplastic syndrome
     Dosage: 75MG VIAL; 1MG/KG ONCE EVERY THREE WEEKS
     Route: 058

REACTIONS (2)
  - White blood cell count increased [Unknown]
  - Haemoglobin decreased [Unknown]
